FAERS Safety Report 5309075-9 (Version None)
Quarter: 2007Q2

REPORT INFORMATION
  Report Type: 
  Country: None (occurrence: None)
  Receive Date: 20070426
  Receipt Date: 20070423
  Transmission Date: 20071010
  Serious: Yes (Other)
  Sender: FDA-Public Use
  Company Number: GB-MERCK-0704GBR00232

PATIENT
  Age: 39 Year
  Sex: Male

DRUGS (3)
  1. ZOCOR [Suspect]
     Indication: HYPERCHOLESTEROLAEMIA
     Route: 048
     Dates: start: 20050311, end: 20060101
  2. ASPIRIN [Concomitant]
     Route: 048
     Dates: start: 20050314
  3. BISOPROLOL [Concomitant]
     Indication: HYPERTENSION
     Route: 048
     Dates: start: 20050304

REACTIONS (2)
  - LOSS OF LIBIDO [None]
  - MOOD SWINGS [None]
